FAERS Safety Report 6477439-6 (Version None)
Quarter: 2009Q4

REPORT INFORMATION
  Report Type: 
  Country: None (occurrence: None)
  Receive Date: 20091207
  Receipt Date: 20091123
  Transmission Date: 20100525
  Serious: Yes (Other)
  Sender: FDA-Public Use
  Company Number: IT-SANOFI-AVENTIS-2009SA000603

PATIENT
  Age: 60 Year
  Sex: Male

DRUGS (3)
  1. ELOXATIN [Suspect]
     Route: 041
     Dates: start: 20091028, end: 20091028
  2. ELOXATIN [Suspect]
     Route: 041
     Dates: start: 20091006, end: 20091006
  3. XELODA [Concomitant]
     Route: 048
     Dates: start: 20091006, end: 20091104

REACTIONS (1)
  - LARYNGOSPASM [None]
